FAERS Safety Report 11416318 (Version 2)
Quarter: 2015Q3

REPORT INFORMATION
  Report Type: Spontaneous
  Country: US (occurrence: US)
  Receive Date: 20150825
  Receipt Date: 20150916
  Transmission Date: 20151125
  Serious: No
  Sender: FDA-Public Use
  Company Number: US-PFIZER INC-2015279391

PATIENT
  Age: 54 Year
  Sex: Male

DRUGS (2)
  1. CELECOXIB. [Suspect]
     Active Substance: CELECOXIB
     Indication: INTESTINAL POLYP
     Dosage: 200 MG, 2X/DAY
     Route: 048
     Dates: start: 1998, end: 20150803
  2. CELECOXIB. [Suspect]
     Active Substance: CELECOXIB
     Indication: LARGE INTESTINE POLYP

REACTIONS (3)
  - Product odour abnormal [Unknown]
  - Parosmia [Unknown]
  - Incorrect product storage [Unknown]

NARRATIVE: CASE EVENT DATE: 20150803
